FAERS Safety Report 5323643-X (Version None)
Quarter: 2007Q2

REPORT INFORMATION
  Report Type: 
  Country: None (occurrence: None)
  Receive Date: 20070507
  Receipt Date: 20070425
  Transmission Date: 20071010
  Serious: Yes (Other)
  Sender: FDA-Public Use
  Company Number: OSCN-GE-0705S-0196

PATIENT
  Age: 61 Year
  Sex: Male

DRUGS (1)
  1. OMNISCAN [Suspect]
     Indication: PARATHYROID TUMOUR BENIGN
     Dosage: 20 ML, SINGLE, DOSE, I.V.
     Route: 042
     Dates: start: 20030519, end: 20030519

REACTIONS (4)
  - CONNECTIVE TISSUE DISORDER [None]
  - HAEMODIALYSIS [None]
  - NEPHROGENIC FIBROSING DERMOPATHY [None]
  - SCLERODERMA [None]
